FAERS Safety Report 15231929 (Version 1)
Quarter: 2018Q3

REPORT INFORMATION
  Report Type: Spontaneous
  Country: PL (occurrence: PL)
  Receive Date: 20180802
  Receipt Date: 20180802
  Transmission Date: 20181010
  Serious: Yes (Death, Other)
  Sender: FDA-Public Use
  Company Number: PL-TAKEDA-2018TUS023765

PATIENT
  Sex: Male

DRUGS (1)
  1. ICLUSIG [Suspect]
     Active Substance: PONATINIB
     Indication: ACUTE LYMPHOCYTIC LEUKAEMIA
     Dosage: 30 MG, QD
     Route: 048
     Dates: start: 20180713

REACTIONS (6)
  - Neutropenia [Unknown]
  - Cardiovascular insufficiency [Unknown]
  - Cerebrovascular accident [Unknown]
  - Pneumonia [Unknown]
  - Acute lymphocytic leukaemia [Fatal]
  - Hemiplegia [Unknown]

NARRATIVE: CASE EVENT DATE: 20180724
